FAERS Safety Report 9105567 (Version 5)
Quarter: 2013Q2

REPORT INFORMATION
  Report Type: Spontaneous
  Country: US (occurrence: US)
  Receive Date: 20130220
  Receipt Date: 20130401
  Transmission Date: 20140414
  Serious: Yes (Death, Other)
  Sender: FDA-Public Use
  Company Number: US-ABBOTT-13P-163-1051955-00

PATIENT
  Sex: Female
  Weight: 73.55 kg

DRUGS (10)
  1. GENGRAF [Suspect]
     Indication: RENAL TRANSPLANT
     Dates: start: 2006, end: 20130216
  2. GENGRAF [Suspect]
     Dates: start: 2006
  3. ZETIA [Concomitant]
     Indication: PRODUCT USED FOR UNKNOWN INDICATION
  4. COUMADIN [Concomitant]
     Indication: PRODUCT USED FOR UNKNOWN INDICATION
  5. CARDIZEM [Concomitant]
     Indication: PRODUCT USED FOR UNKNOWN INDICATION
  6. PRILOSEC [Concomitant]
     Indication: PRODUCT USED FOR UNKNOWN INDICATION
  7. ATENOLOL [Concomitant]
     Indication: PRODUCT USED FOR UNKNOWN INDICATION
  8. COZAAR [Concomitant]
     Indication: PRODUCT USED FOR UNKNOWN INDICATION
  9. PREDNISONE [Concomitant]
     Indication: PRODUCT USED FOR UNKNOWN INDICATION
  10. CELLCEPT [Concomitant]
     Indication: PRODUCT USED FOR UNKNOWN INDICATION

REACTIONS (6)
  - Cardiac failure congestive [Fatal]
  - Chronic obstructive pulmonary disease [Unknown]
  - Disease complication [Unknown]
  - Arrhythmia [Unknown]
  - Pulmonary embolism [Unknown]
  - Acute coronary syndrome [Unknown]
